FAERS Safety Report 10091220 (Version 3)
Quarter: 2015Q3

REPORT INFORMATION
  Report Type: Spontaneous
  Country: US (occurrence: US)
  Receive Date: 20140421
  Receipt Date: 20150812
  Transmission Date: 20151125
  Serious: No
  Sender: FDA-Public Use
  Company Number: US-GILEAD-2012-0060973

PATIENT
  Age: 60 Year
  Sex: Female
  Weight: 52.61 kg

DRUGS (21)
  1. LETAIRIS [Suspect]
     Active Substance: AMBRISENTAN
     Indication: PULMONARY HYPERTENSION
     Dosage: 5 MG, UNK
     Route: 048
     Dates: start: 20120817
  2. LETAIRIS [Suspect]
     Active Substance: AMBRISENTAN
     Indication: SCLERODERMA
     Dosage: 2.5 UNK, UNK
     Route: 048
  3. COLCRYS [Concomitant]
     Active Substance: COLCHICINE
  4. NEXIUM [Concomitant]
     Active Substance: ESOMEPRAZOLE MAGNESIUM
  5. TYLENOL [Concomitant]
     Active Substance: ACETAMINOPHEN
  6. POTASSIUM CHLORIDE. [Concomitant]
     Active Substance: POTASSIUM CHLORIDE
  7. SERTRALINE [Concomitant]
     Active Substance: SERTRALINE HYDROCHLORIDE
  8. SODIUM CHLORIDE. [Concomitant]
     Active Substance: SODIUM CHLORIDE
  9. ATARAX [Concomitant]
     Active Substance: HYDROXYZINE\HYDROXYZINE HYDROCHLORIDE
  10. LASIX [Concomitant]
     Active Substance: FUROSEMIDE
  11. ALDACTONE [Concomitant]
     Active Substance: SPIRONOLACTONE
  12. ATIVAN [Concomitant]
     Active Substance: LORAZEPAM
  13. GEMFIBROZIL. [Concomitant]
     Active Substance: GEMFIBROZIL
  14. VITAMIN B12 [Concomitant]
     Active Substance: CYANOCOBALAMIN
  15. FERROUS SULFATE [Concomitant]
     Active Substance: FERROUS SULFATE\FERROUS SULFATE, DRIED
  16. ZYLOPRIM [Concomitant]
     Active Substance: ALLOPURINOL
  17. DELTASONE                          /00016001/ [Concomitant]
  18. REVATIO [Concomitant]
     Active Substance: SILDENAFIL CITRATE
  19. REMODULIN [Concomitant]
     Active Substance: TREPROSTINIL
  20. SYNTHROID [Concomitant]
     Active Substance: LEVOTHYROXINE SODIUM
  21. IMODIUM [Concomitant]
     Active Substance: LOPERAMIDE HYDROCHLORIDE

REACTIONS (5)
  - Headache [Recovering/Resolving]
  - Flushing [Unknown]
  - Vision blurred [Recovering/Resolving]
  - Nausea [Unknown]
  - Wrong technique in product usage process [Unknown]
